FAERS Safety Report 22529773 (Version 1)
Quarter: 2023Q2

REPORT INFORMATION
  Report Type: Spontaneous
  Country: US (occurrence: US)
  Receive Date: 20230607
  Receipt Date: 20230607
  Transmission Date: 20230721
  Serious: No
  Sender: FDA-Public Use
  Company Number: US-BAUSCH-BL-2023-008518

PATIENT
  Sex: Female

DRUGS (2)
  1. TRULANCE [Suspect]
     Active Substance: PLECANATIDE
     Indication: Product used for unknown indication
     Route: 048
     Dates: start: 2023
  2. TRULANCE [Suspect]
     Active Substance: PLECANATIDE
     Route: 048
     Dates: start: 2023

REACTIONS (5)
  - Abdominal distension [Recovering/Resolving]
  - Epigastric discomfort [Unknown]
  - Ill-defined disorder [Unknown]
  - Muscle spasms [Recovering/Resolving]
  - Incorrect dose administered [Unknown]

NARRATIVE: CASE EVENT DATE: 20230101
